FAERS Safety Report 18250810 (Version 1)
Quarter: 2020Q3

REPORT INFORMATION
  Report Type: Spontaneous
  Country: US (occurrence: US)
  Receive Date: 20200909
  Receipt Date: 20200909
  Transmission Date: 20201103
  Serious: Yes (Other)
  Sender: FDA-Public Use
  Company Number: US-BIOMARINAP-US-2020-131961

PATIENT
  Age: 33 Year
  Sex: Male
  Weight: 101.13 kg

DRUGS (3)
  1. ZYRTEC [Concomitant]
     Active Substance: CETIRIZINE HYDROCHLORIDE
     Indication: PREMEDICATION
     Dosage: 10 MILLIGRAM, QD
  2. PEPCID [Concomitant]
     Active Substance: FAMOTIDINE
     Indication: PREMEDICATION
     Dosage: 40 MILLIGRAM, QD
  3. PALYNZIQ [Suspect]
     Active Substance: PEGVALIASE-PQPZ
     Indication: PHENYLKETONURIA
     Dosage: 2.5 MILLIGRAM, QW
     Route: 058
     Dates: start: 20200812

REACTIONS (17)
  - Rash papular [Not Recovered/Not Resolved]
  - Pain [Recovering/Resolving]
  - Tremor [Unknown]
  - Hyperhidrosis [Unknown]
  - Pain of skin [Recovering/Resolving]
  - Dyspnoea [Unknown]
  - Tachypnoea [Unknown]
  - Confusional state [Recovered/Resolved]
  - Platelet count decreased [Unknown]
  - Injection site swelling [Unknown]
  - Rash erythematous [Not Recovered/Not Resolved]
  - Rash pruritic [Not Recovered/Not Resolved]
  - Gait disturbance [Unknown]
  - Injection site erythema [Unknown]
  - Disorientation [Recovered/Resolved]
  - Fatigue [Not Recovered/Not Resolved]
  - Skin warm [Unknown]

NARRATIVE: CASE EVENT DATE: 202008
